FAERS Safety Report 8422413-3 (Version None)
Quarter: 2012Q2

REPORT INFORMATION
  Report Type: 
  Country: None (occurrence: None)
  Receive Date: 20120608
  Receipt Date: 20120606
  Transmission Date: 20120825
  Serious: Yes (Death, Other)
  Sender: FDA-Public Use
  Company Number: AU-B.I. PHARMACEUTICALS,INC./RIDGEFIELD-2012-AU-01059AU

PATIENT
  Sex: Male

DRUGS (2)
  1. PRADAXA [Suspect]
     Indication: CEREBROVASCULAR ACCIDENT PROPHYLAXIS
     Dates: start: 20110627
  2. PRADAXA [Suspect]
     Indication: ATRIAL FIBRILLATION

REACTIONS (4)
  - RIB FRACTURE [None]
  - POST PROCEDURAL COMPLICATION [None]
  - SPINAL FRACTURE [None]
  - ROAD TRAFFIC ACCIDENT [None]
